FAERS Safety Report 5831596-0 (Version None)
Quarter: 2008Q3

REPORT INFORMATION
  Report Type: 
  Country: None (occurrence: None)
  Receive Date: 20080730
  Receipt Date: 20080716
  Transmission Date: 20090109
  Serious: Yes (Hospitalization, Other)
  Sender: FDA-Public Use
  Company Number: 2008AL008572

PATIENT
  Age: 43 Year
  Sex: Male

DRUGS (1)
  1. DIGOXIN [Suspect]
     Dosage: 0.25MG DAILY PO
     Route: 048
     Dates: start: 20070901

REACTIONS (3)
  - CARDIAC DISORDER [None]
  - NAUSEA [None]
  - VISION BLURRED [None]
